FAERS Safety Report 18479543 (Version 1)
Quarter: 2020Q4

REPORT INFORMATION
  Report Type: Spontaneous
  Country: US (occurrence: US)
  Receive Date: 20201106
  Receipt Date: 20201106
  Transmission Date: 20210114
  Serious: Yes (Hospitalization)
  Sender: FDA-Public Use
  Company Number: None

PATIENT
  Age: 65 Year
  Sex: Male

DRUGS (22)
  1. CLOBETASOL OIN 0.05% [Concomitant]
     Dates: start: 20100402
  2. COZAAR TAB 50MG [Concomitant]
     Dates: start: 20090106
  3. BETAMETH DIP CRE 0.05% [Concomitant]
     Dates: start: 20090106
  4. LANTUS INJ 100/ML [Concomitant]
     Dates: start: 20201022
  5. CLINDAMYCIN SOL 1% [Concomitant]
     Dates: start: 20100324
  6. EPIPEN INJ 0.3MG [Concomitant]
     Dates: start: 20090401
  7. AMLODIPINE [Concomitant]
     Active Substance: AMLODIPINE BESYLATE
     Dates: start: 20090221
  8. AMOXICILLIN CAPSULE 500MG [Concomitant]
     Active Substance: AMOXICILLIN
     Dates: start: 20090106
  9. AZELASTINE SPR 0.1% [Concomitant]
     Dates: start: 20200612
  10. COZAAR TAB 100MG [Concomitant]
     Dates: start: 20090530
  11. CYCLOBENZAPR TAB 10MG [Concomitant]
     Dates: start: 20090430
  12. LEVOFLOXACIN TAB 250MG [Concomitant]
     Dates: start: 20201103
  13. DOXYCYCL HYC CAP 100MG [Concomitant]
     Dates: start: 20100922
  14. CEPHALEXIN CAP 500MG [Concomitant]
     Dates: start: 20100402
  15. DOXYCYC MONO CAP 100MG [Concomitant]
     Dates: start: 20101103
  16. HALOBETASOL OIN 0.05% [Concomitant]
     Dates: start: 20101006
  17. LEVOCETIRIZI TAB 5MG [Concomitant]
     Dates: start: 20201005
  18. BARACLUDE [Suspect]
     Active Substance: ENTECAVIR
     Indication: HEPATITIS B
     Route: 048
     Dates: start: 20150603
  19. LANTUS SOLOS INJ 100/ML [Concomitant]
     Dates: start: 20201028
  20. ALLOPURINOL TABLET 100MG [Concomitant]
     Active Substance: ALLOPURINOL
     Dates: start: 20200610
  21. BENZOYL PER LIQ 10% WASH [Concomitant]
     Dates: start: 20101006
  22. DIAZEPAM TAB 10MG [Concomitant]
     Dates: start: 20200411

REACTIONS (1)
  - Liver transplant rejection [None]

NARRATIVE: CASE EVENT DATE: 20201009
